FAERS Safety Report 8956222 (Version 2)
Quarter: 2012Q4

REPORT INFORMATION
  Report Type: 
  Country: US (occurrence: US)
  Receive Date: 20121210
  Receipt Date: 20121217
  Transmission Date: 20130627
  Serious: Yes (Other)
  Sender: FDA-Public Use
  Company Number: US-JNJFOC-20121201795

PATIENT
  Age: 56 Year
  Sex: Female
  Weight: 90.7 kg

DRUGS (11)
  1. NICOTROL NASAL SPRAY [Suspect]
     Indication: SMOKING CESSATION THERAPY
     Route: 045
     Dates: start: 20121116
  2. MORPHINE SULFATE [Suspect]
     Indication: INTERVERTEBRAL DISC DEGENERATION
     Route: 065
  3. OXYCODONE [Suspect]
     Indication: PAIN
     Route: 065
  4. MORPHINE [Concomitant]
     Route: 065
  5. ALBUTEROL [Concomitant]
     Indication: ASTHMA
     Route: 065
  6. XANAX [Concomitant]
     Route: 065
  7. OXYCODONE [Concomitant]
     Route: 065
  8. FLAVOXATE [Concomitant]
     Route: 065
  9. CITALOPRAM [Concomitant]
     Route: 065
  10. LOSARTAN [Concomitant]
     Indication: HYPERTENSION
     Route: 065
  11. FLEXERIL [Concomitant]
     Indication: MUSCLE SPASMS
     Route: 065

REACTIONS (15)
  - Intervertebral disc degeneration [Unknown]
  - Fibromyalgia [Unknown]
  - Tinnitus [Not Recovered/Not Resolved]
  - Pain [Unknown]
  - Ear pain [Not Recovered/Not Resolved]
  - Nasal congestion [Not Recovered/Not Resolved]
  - Neck pain [Not Recovered/Not Resolved]
  - Bruxism [Unknown]
  - Loose tooth [Unknown]
  - Headache [Unknown]
  - Hot flush [Unknown]
  - Irritability [Unknown]
  - Rhinorrhoea [Unknown]
  - Sneezing [Unknown]
  - Dizziness [Unknown]
